FAERS Safety Report 12929527 (Version 1)
Quarter: 2016Q4

REPORT INFORMATION
  Report Type: Report from Study
  Country: JP (occurrence: JP)
  Receive Date: 20161110
  Receipt Date: 20161110
  Transmission Date: 20170207
  Serious: Yes (Other)
  Sender: FDA-Public Use
  Company Number: JP-GLAXOSMITHKLINE-B0860445A

PATIENT
  Age: 61 Year
  Sex: Female

DRUGS (34)
  1. PREDONINE [Concomitant]
     Active Substance: PREDNISOLONE\PREDNISOLONE ACETATE\PREDNISOLONE SODIUM SUCCINATE
     Dosage: 20 MG, 1D
     Route: 048
     Dates: start: 20090930, end: 20090930
  2. VENETLIN [Concomitant]
     Active Substance: ALBUTEROL SULFATE
     Dosage: 0.2 ML, 1D
     Route: 055
     Dates: start: 20100324, end: 20100326
  3. ONON [Concomitant]
     Active Substance: PRANLUKAST
     Dosage: 450 MG, 1D
     Route: 048
     Dates: start: 20091105
  4. PREDONINE [Concomitant]
     Active Substance: PREDNISOLONE\PREDNISOLONE ACETATE\PREDNISOLONE SODIUM SUCCINATE
     Dosage: 20 MG, 1D
     Route: 048
     Dates: start: 20100327, end: 20100328
  5. VENETLIN [Concomitant]
     Active Substance: ALBUTEROL SULFATE
     Dosage: 0.2 ML, 1D
     Route: 055
     Dates: start: 20091001, end: 20091002
  6. CLARITIN [Concomitant]
     Active Substance: LORATADINE
     Dosage: 10 MG, 1D
     Route: 048
     Dates: start: 20100222, end: 20100622
  7. PREDONINE [Concomitant]
     Active Substance: PREDNISOLONE\PREDNISOLONE ACETATE\PREDNISOLONE SODIUM SUCCINATE
     Dosage: 20 MG, 1D
     Route: 048
     Dates: start: 20100106, end: 20100106
  8. PREDONINE [Concomitant]
     Active Substance: PREDNISOLONE\PREDNISOLONE ACETATE\PREDNISOLONE SODIUM SUCCINATE
     Dosage: 20 MG, 1D
     Route: 048
     Dates: start: 20100225, end: 20100227
  9. HICORT (BETAMETHASONE DISODIUM PHOSPHATE) [Concomitant]
     Dosage: UNK
  10. CHAMPIX [Concomitant]
     Active Substance: VARENICLINE TARTRATE
     Dosage: 0.5 MG, 1D
     Route: 048
     Dates: start: 20091008, end: 20091010
  11. VENETLIN [Concomitant]
     Active Substance: ALBUTEROL SULFATE
     Dosage: 0.2 ML, 1D
     Route: 055
     Dates: start: 20100107, end: 20100108
  12. SYMBICORT [Concomitant]
     Active Substance: BUDESONIDE\FORMOTEROL FUMARATE DIHYDRATE
     Dosage: 4 DF, 1D
     Route: 055
     Dates: start: 20100803
  13. HICORT (BETAMETHASONE DISODIUM PHOSPHATE) [Concomitant]
     Dosage: 4 MG, 1D
     Route: 041
     Dates: start: 20100222, end: 20100224
  14. PREDONINE [Concomitant]
     Active Substance: PREDNISOLONE\PREDNISOLONE ACETATE\PREDNISOLONE SODIUM SUCCINATE
     Dosage: 20 MG, 1D
     Route: 048
     Dates: start: 20091003, end: 20091005
  15. PREDONINE [Concomitant]
     Active Substance: PREDNISOLONE\PREDNISOLONE ACETATE\PREDNISOLONE SODIUM SUCCINATE
     Dosage: 20 MG, 1D
     Route: 048
     Dates: start: 20100109, end: 20100111
  16. HICORT (BETAMETHASONE DISODIUM PHOSPHATE) [Concomitant]
     Dosage: 6 MG, 1D
     Route: 041
     Dates: start: 20090928, end: 20090929
  17. HICORT (BETAMETHASONE DISODIUM PHOSPHATE) [Concomitant]
     Dosage: 4 MG, 1D
     Route: 041
     Dates: start: 20100105, end: 20100105
  18. HICORT (BETAMETHASONE DISODIUM PHOSPHATE) [Concomitant]
     Dosage: 6 MG, 1D
     Route: 041
     Dates: start: 20100420, end: 20100422
  19. PREDONINE [Concomitant]
     Active Substance: PREDNISOLONE\PREDNISOLONE ACETATE\PREDNISOLONE SODIUM SUCCINATE
     Dosage: 20 MG, 1D
     Route: 048
     Dates: start: 20091105, end: 20091109
  20. VENETLIN [Concomitant]
     Active Substance: ALBUTEROL SULFATE
     Dosage: 0.2 ML, 1D
     Route: 055
     Dates: start: 20100105, end: 20100105
  21. HICORT (BETAMETHASONE DISODIUM PHOSPHATE) [Concomitant]
     Dosage: 6 MG, 1D
     Route: 041
     Dates: start: 20091001, end: 20091002
  22. MUCOSOLVAN (AMBROXOL HYDROCHLORIDE) [Concomitant]
     Active Substance: AMBROXOL HYDROCHLORIDE
     Dosage: 3 DF, 1D
     Route: 048
     Dates: start: 20100108, end: 20100217
  23. CHAMPIX [Concomitant]
     Active Substance: VARENICLINE TARTRATE
     Dosage: 2 MG, 1D
     Route: 048
     Dates: start: 20091015, end: 20100119
  24. HICORT (BETAMETHASONE DISODIUM PHOSPHATE) [Concomitant]
     Dosage: 6 MG, 1D
     Route: 041
     Dates: start: 20100324, end: 20100326
  25. PATANOL [Concomitant]
     Active Substance: OLOPATADINE HYDROCHLORIDE
     Dosage: UNKNOWN, QID
     Route: 047
     Dates: start: 20100222, end: 20100407
  26. CHAMPIX [Concomitant]
     Active Substance: VARENICLINE TARTRATE
     Dosage: 1 MG, 1D
     Route: 048
     Dates: start: 20091011, end: 20091014
  27. FLUTICASONE PROPIONATE+SALMETEROL XINAFOATE 250 [Suspect]
     Active Substance: FLUTICASONE PROPIONATE\SALMETEROL XINAFOATE
     Indication: EMPHYSEMA
     Dosage: 250 ?G, BID
     Route: 055
     Dates: start: 20090928, end: 20100420
  28. SPIRIVA [Concomitant]
     Active Substance: TIOTROPIUM BROMIDE MONOHYDRATE
     Indication: EMPHYSEMA
     Dosage: 18 ?G, 1D
     Route: 055
     Dates: start: 20090928, end: 20091207
  29. SULTANOL [Concomitant]
     Active Substance: ALBUTEROL SULFATE
     Indication: EMPHYSEMA
     Dosage: UNK
     Route: 055
     Dates: start: 20090928
  30. VENETLIN [Concomitant]
     Active Substance: ALBUTEROL SULFATE
     Dosage: 0.2 ML, 1D
     Route: 055
     Dates: start: 20090928, end: 20090929
  31. VENETLIN [Concomitant]
     Active Substance: ALBUTEROL SULFATE
     Dosage: 0.2 ML, 1D
     Route: 055
     Dates: start: 20100222, end: 20100224
  32. VENETLIN [Concomitant]
     Active Substance: ALBUTEROL SULFATE
     Dosage: 0.2 ML, 1D
     Route: 055
     Dates: start: 20100420, end: 20100422
  33. SYMBICORT [Concomitant]
     Active Substance: BUDESONIDE\FORMOTEROL FUMARATE DIHYDRATE
     Dosage: 8 DF, 1D
     Route: 055
     Dates: start: 20100420, end: 20100802
  34. HICORT (BETAMETHASONE DISODIUM PHOSPHATE) [Concomitant]
     Dosage: 4 MG, 1D
     Route: 041
     Dates: start: 20100107, end: 20100108

REACTIONS (10)
  - Asthma [Recovered/Resolved]
  - Rhinitis allergic [Recovered/Resolved]
  - Constipation [Recovered/Resolved]
  - Asthma [Recovered/Resolved]
  - Conjunctivitis allergic [Recovered/Resolved]
  - Asthma [Recovered/Resolved]
  - Asthma [Recovered/Resolved]
  - Asthma [Recovered/Resolved]
  - Asthma [Recovered/Resolved]
  - Pneumonia [Recovered/Resolved]

NARRATIVE: CASE EVENT DATE: 20090928
